FAERS Safety Report 8708720 (Version 2)
Quarter: 2013Q4

REPORT INFORMATION
  Report Type: Spontaneous
  Country: US (occurrence: US)
  Receive Date: 20120806
  Receipt Date: 20131101
  Transmission Date: 20140711
  Serious: No
  Sender: FDA-Public Use
  Company Number: US-009507513-1208USA000008

PATIENT
  Sex: Male

DRUGS (2)
  1. PEPCID [Suspect]
     Indication: DYSPEPSIA
  2. CELEBREX [Concomitant]
     Indication: HEADACHE

REACTIONS (1)
  - Haematochezia [Unknown]
